FAERS Safety Report 7182599-8 (Version None)
Quarter: 2010Q4

REPORT INFORMATION
  Report Type: 
  Country: None (occurrence: None)
  Receive Date: 20101221
  Receipt Date: 20100517
  Transmission Date: 20110411
  Serious: Yes (Other)
  Sender: FDA-Public Use
  Company Number: US-AMGEN-QUU407495

PATIENT

DRUGS (10)
  1. ENBREL [Suspect]
     Indication: PSORIASIS
     Dosage: UNK UNK, UNK
     Dates: start: 20090614
  2. ALBUTEROL SULFATE [Concomitant]
  3. ALLOPURINOL [Concomitant]
  4. RAMIPRIL [Concomitant]
  5. ACETYLSALICYLIC ACID [Concomitant]
  6. DILTIAZEM HYDROCHLORIDE [Concomitant]
  7. WARFARIN SODIUM [Concomitant]
  8. ROSUVASTATIN CALCIUM [Concomitant]
  9. PROTOPIC [Concomitant]
  10. TRIAMCINOLONE [Concomitant]

REACTIONS (1)
  - MALIGNANT MELANOMA IN SITU [None]
